FAERS Safety Report 10287805 (Version 1)
Quarter: 2014Q3

REPORT INFORMATION
  Report Type: Spontaneous
  Country: CA (occurrence: US)
  Receive Date: 20140709
  Receipt Date: 20140709
  Transmission Date: 20150326
  Serious: Yes (Other)
  Sender: FDA-Public Use
  Company Number: US-TEVA-493558USA

PATIENT
  Sex: Female

DRUGS (1)
  1. PLAN B ONE-STEP [Suspect]
     Active Substance: LEVONORGESTREL
     Indication: POST COITAL CONTRACEPTION
     Dosage: 1.5 MILLIGRAM DAILY;
     Route: 048
     Dates: start: 20140703, end: 20140703

REACTIONS (4)
  - Haemorrhage [Unknown]
  - Thrombosis [Unknown]
  - Menstruation irregular [Unknown]
  - Muscle spasms [Unknown]
